FAERS Safety Report 5183821-X (Version None)
Quarter: 2006Q4

REPORT INFORMATION
  Report Type: 
  Country: None (occurrence: None)
  Receive Date: 20061220
  Receipt Date: 20061214
  Transmission Date: 20070319
  Serious: Yes (Other)
  Sender: FDA-Public Use
  Company Number: US-GLAXOSMITHKLINE-A0631616A

PATIENT
  Age: 12 Year
  Sex: Male

DRUGS (3)
  1. ADVAIR DISKUS 100/50 [Suspect]
     Indication: ASTHMA
     Dosage: 1PUFF TWICE PER DAY
     Route: 055
     Dates: start: 20060101
  2. ALBUTEROL [Concomitant]
  3. FLOVENT [Concomitant]

REACTIONS (4)
  - DIZZINESS [None]
  - HEPATIC ENZYME INCREASED [None]
  - NAUSEA [None]
  - VISION BLURRED [None]
